FAERS Safety Report 16579033 (Version 2)
Quarter: 2019Q4

REPORT INFORMATION
  Report Type: Report from Study
  Country: None (occurrence: RU)
  Receive Date: 20190716
  Receipt Date: 20191112
  Transmission Date: 20200122
  Serious: Yes (Hospitalization)
  Sender: FDA-Public Use
  Company Number: RU-ABBVIE-19K-251-2851842-00

PATIENT
  Age: 37 Year
  Sex: Male

DRUGS (2)
  1. TENOFOVIR [Concomitant]
     Active Substance: TENOFOVIR
     Indication: HEPATITIS B
     Route: 048
     Dates: start: 20190305, end: 20190429
  2. MAVIRET [Suspect]
     Active Substance: GLECAPREVIR\PIBRENTASVIR
     Indication: HEPATITIS C
     Dosage: 100/40 MG
     Route: 048
     Dates: start: 20190305, end: 20190429

REACTIONS (3)
  - Hepatic cirrhosis [Recovered/Resolved]
  - Abdominal distension [Recovered/Resolved]
  - Asthenia [Recovered/Resolved]

NARRATIVE: CASE EVENT DATE: 20190701
